FAERS Safety Report 16103900 (Version 1)
Quarter: 2019Q1

REPORT INFORMATION
  Report Type: Spontaneous
  Country: US (occurrence: US)
  Receive Date: 20190322
  Receipt Date: 20190322
  Transmission Date: 20190418
  Serious: No
  Sender: FDA-Public Use
  Company Number: US-HIKMA PHARMACEUTICALS USA INC.-US-H14001-18-04162

PATIENT
  Sex: Female

DRUGS (2)
  1. FLUTICASONE. [Suspect]
     Active Substance: FLUTICASONE
     Indication: ALLERGIC SINUSITIS
  2. FLUTICASONE. [Suspect]
     Active Substance: FLUTICASONE
     Indication: SEASONAL ALLERGY
     Route: 045
     Dates: start: 201805

REACTIONS (2)
  - Product use in unapproved indication [Unknown]
  - Accidental underdose [Unknown]

NARRATIVE: CASE EVENT DATE: 201805
